FAERS Safety Report 7387819-2 (Version None)
Quarter: 2011Q1

REPORT INFORMATION
  Report Type: 
  Country: None (occurrence: None)
  Receive Date: 20110331
  Receipt Date: 20110328
  Transmission Date: 20110831
  Serious: Yes (Other)
  Sender: FDA-Public Use
  Company Number: IT-MERCK-1103ITA00047

PATIENT
  Age: 62 Year
  Sex: Female

DRUGS (2)
  1. ATORVASTATIN CALCIUM [Concomitant]
     Route: 048
     Dates: start: 20100101
  2. FOSAMAX PLUS D [Suspect]
     Indication: OSTEOPOROSIS
     Route: 048
     Dates: start: 20110324, end: 20110324

REACTIONS (5)
  - CONVULSION [None]
  - CHILLS [None]
  - CHEST PAIN [None]
  - PYREXIA [None]
  - ARTHRALGIA [None]
